FAERS Safety Report 8417711-3 (Version None)
Quarter: 2012Q2

REPORT INFORMATION
  Report Type: 
  Country: None (occurrence: None)
  Receive Date: 20120607
  Receipt Date: 20120530
  Transmission Date: 20120825
  Serious: Yes (Life-Threatening, Hospitalization)
  Sender: FDA-Public Use
  Company Number: BE-BIOGENIDEC-2011BI047061

PATIENT
  Age: 46 Year
  Sex: Male

DRUGS (1)
  1. TYSABRI [Suspect]
     Indication: RELAPSING-REMITTING MULTIPLE SCLEROSIS
     Dates: start: 20080107

REACTIONS (3)
  - MENINGITIS STREPTOCOCCAL [None]
  - INTRACRANIAL HYPOTENSION [None]
  - MEDICAL DEVICE COMPLICATION [None]
